FAERS Safety Report 13688741 (Version 1)
Quarter: 2017Q2

REPORT INFORMATION
  Report Type: Spontaneous
  Country: US (occurrence: US)
  Receive Date: 20170623
  Receipt Date: 20170623
  Transmission Date: 20170830
  Serious: Yes (Hospitalization, Disabling)
  Sender: FDA-Public Use
  Company Number: None

PATIENT
  Age: 47 Year
  Sex: Female
  Weight: 63 kg

DRUGS (2)
  1. ATIVAN [Suspect]
     Active Substance: LORAZEPAM
     Indication: ANXIETY
     Dates: start: 20151001, end: 20161021
  2. ATIVAN [Suspect]
     Active Substance: LORAZEPAM
     Indication: NEOPLASM MALIGNANT
     Dates: start: 20151001, end: 20161021

REACTIONS (8)
  - Insomnia [None]
  - Hypotension [None]
  - Irritability [None]
  - Anxiety [None]
  - Intrusive thoughts [None]
  - Bruxism [None]
  - Palpitations [None]
  - Dizziness [None]

NARRATIVE: CASE EVENT DATE: 20160216
